FAERS Safety Report 5518311-5 (Version None)
Quarter: 2007Q4

REPORT INFORMATION
  Report Type: 
  Country: None (occurrence: None)
  Receive Date: 20071115
  Receipt Date: 20071107
  Transmission Date: 20080405
  Serious: Yes (Disabling)
  Sender: FDA-Public Use
  Company Number: US-AVENTIS-200717832US

PATIENT
  Age: 86 Year
  Sex: Female

DRUGS (1)
  1. ARAVA [Suspect]
     Dosage: DOSE: UNK

REACTIONS (10)
  - ASTHENIA [None]
  - DYSPHAGIA [None]
  - DYSPNOEA [None]
  - FALL [None]
  - HYPERSENSITIVITY [None]
  - LIP SWELLING [None]
  - OEDEMA MOUTH [None]
  - PAIN [None]
  - PHARYNGEAL OEDEMA [None]
  - STOMATITIS [None]
